FAERS Safety Report 24980181 (Version 1)
Quarter: 2025Q1

REPORT INFORMATION
  Report Type: Spontaneous
  Country: US (occurrence: None)
  Receive Date: 20250214
  Receipt Date: 20250214
  Transmission Date: 20250409
  Serious: Yes (Other)
  Sender: FDA-CTU
  Company Number: None

PATIENT
  Age: 16 Year
  Sex: Female
  Weight: 70.7 kg

DRUGS (1)
  1. DUPIXENT [Suspect]
     Active Substance: DUPILUMAB
     Indication: Dermatitis atopic
     Route: 058
     Dates: start: 20240601, end: 20250108

REACTIONS (6)
  - Ocular hyperaemia [None]
  - Erythema of eyelid [None]
  - Vision blurred [None]
  - Photophobia [None]
  - Impaired driving ability [None]
  - Loss of personal independence in daily activities [None]

NARRATIVE: CASE EVENT DATE: 20250108
